FAERS Safety Report 5080728-3 (Version None)
Quarter: 2006Q3

REPORT INFORMATION
  Report Type: 
  Country: None (occurrence: None)
  Receive Date: 20060809
  Receipt Date: 20060717
  Transmission Date: 20061208
  Serious: Yes (Hospitalization)
  Sender: FDA-Public Use
  Company Number: 13443296

PATIENT
  Age: 21 Year
  Sex: Female

DRUGS (1)
  1. REVIA [Suspect]
     Indication: ALCOHOL REHABILITATION
     Dosage: 1 DAY ORAL
     Route: 048

REACTIONS (1)
  - SCIATICA [None]
